FAERS Safety Report 4556403-8 (Version None)
Quarter: 2005Q1

REPORT INFORMATION
  Report Type: 
  Country: None (occurrence: None)
  Receive Date: 20050120
  Receipt Date: 20050107
  Transmission Date: 20050727
  Serious: Yes (Hospitalization)
  Sender: FDA-Public Use
  Company Number: PRIUSA2000012156

PATIENT
  Sex: Male
  Weight: 71 kg

DRUGS (3)
  1. REMICADE [Suspect]
     Route: 041
     Dates: start: 20000828
  2. REMICADE [Suspect]
     Route: 041
     Dates: start: 20000828
  3. REMICADE [Suspect]
     Route: 041
     Dates: start: 20000828

REACTIONS (12)
  - BLASTOCYSTIS INFECTION [None]
  - DIARRHOEA [None]
  - FUNGAL INFECTION [None]
  - GRANULOMA [None]
  - HEPATIC ENZYME INCREASED [None]
  - LYMPH NODE TUBERCULOSIS [None]
  - LYMPHADENOPATHY [None]
  - NECROSIS [None]
  - PLEURAL EFFUSION [None]
  - PYREXIA [None]
  - SPLEEN DISORDER [None]
  - WEIGHT DECREASED [None]
